FAERS Safety Report 9887160 (Version 1)
Quarter: 2014Q1

REPORT INFORMATION
  Report Type: Spontaneous
  Country: US (occurrence: US)
  Receive Date: 20140211
  Receipt Date: 20140211
  Transmission Date: 20141002
  Serious: No
  Sender: FDA-Public Use
  Company Number: US-BIOGENIDEC-2014BI000729

PATIENT
  Age: 52 Year
  Sex: Female

DRUGS (13)
  1. TECFIDERA [Suspect]
     Indication: MULTIPLE SCLEROSIS
     Route: 048
     Dates: start: 20131230
  2. TECFIDERA [Suspect]
     Indication: MULTIPLE SCLEROSIS
     Route: 048
     Dates: start: 20131230
  3. AVONEX [Concomitant]
     Indication: MULTIPLE SCLEROSIS
     Route: 030
     Dates: start: 20051007
  4. CALCIUM [Concomitant]
  5. VITAMIN D [Concomitant]
  6. IRON [Concomitant]
  7. AMBIEN [Concomitant]
  8. LEXAPRO [Concomitant]
  9. PRILOSEC [Concomitant]
  10. PREMARIN [Concomitant]
  11. CYCLOBENZAPRINE [Concomitant]
  12. NAPROXEN [Concomitant]
  13. ADDERALL [Concomitant]

REACTIONS (5)
  - Headache [Unknown]
  - Flushing [Not Recovered/Not Resolved]
  - Pruritus [Not Recovered/Not Resolved]
  - Nausea [Recovered/Resolved]
  - Vomiting [Recovered/Resolved]
